FAERS Safety Report 9352345 (Version 1)
Quarter: 2013Q2

REPORT INFORMATION
  Report Type: Spontaneous
  Country: CN (occurrence: CN)
  Receive Date: 20130617
  Receipt Date: 20130617
  Transmission Date: 20140414
  Serious: Yes (Other)
  Sender: FDA-Public Use
  Company Number: CN-GILEAD-2013-0077278

PATIENT
  Age: 40 Year
  Sex: Male

DRUGS (2)
  1. ADEFOVIR DIPIVOXIL [Suspect]
     Indication: HEPATITIS B
  2. MIACALCIC [Concomitant]

REACTIONS (5)
  - Osteoporosis [Recovered/Resolved]
  - Pain [Recovered/Resolved]
  - Bone density decreased [Unknown]
  - Hypophosphataemia [Unknown]
  - Hypouricaemia [Unknown]
